FAERS Safety Report 4930639-6 (Version None)
Quarter: 2006Q1

REPORT INFORMATION
  Report Type: 
  Country: None (occurrence: None)
  Receive Date: 20060302
  Receipt Date: 20050628
  Transmission Date: 20060701
  Serious: Yes (Hospitalization)
  Sender: FDA-Public Use
  Company Number: US-MERCK-0506USA03957

PATIENT
  Age: 49 Year
  Sex: Male
  Weight: 100 kg

DRUGS (6)
  1. VIOXX [Suspect]
     Indication: BACK PAIN
     Route: 048
     Dates: start: 20000322, end: 20030701
  2. VIOXX [Suspect]
     Route: 048
     Dates: start: 20000322, end: 20030701
  3. VIOXX [Suspect]
     Indication: NECK PAIN
     Route: 048
     Dates: start: 20000322, end: 20030701
  4. VIOXX [Suspect]
     Route: 048
     Dates: start: 20000322, end: 20030701
  5. VIOXX [Suspect]
     Route: 048
     Dates: start: 20000322, end: 20030701
  6. VIOXX [Suspect]
     Route: 048
     Dates: start: 20000322, end: 20030701

REACTIONS (7)
  - ANGINA UNSTABLE [None]
  - CHEST PAIN [None]
  - DIABETES MELLITUS NON-INSULIN-DEPENDENT [None]
  - FATIGUE [None]
  - ISCHAEMIA [None]
  - MYOCARDIAL INFARCTION [None]
  - OVERDOSE [None]
